APPROVED DRUG PRODUCT: AMILORIDE HYDROCHLORIDE
Active Ingredient: AMILORIDE HYDROCHLORIDE
Strength: 5MG
Dosage Form/Route: TABLET;ORAL
Application: A204180 | Product #001
Applicant: CHARTWELL RX SCIENCES LLC
Approved: Aug 7, 2015 | RLD: No | RS: No | Type: DISCN